FAERS Safety Report 6713797-2 (Version None)
Quarter: 2010Q2

REPORT INFORMATION
  Report Type: 
  Country: None (occurrence: None)
  Receive Date: 20100506
  Receipt Date: 20100429
  Transmission Date: 20101027
  Serious: Yes (Disabling)
  Sender: FDA-Public Use
  Company Number: GXKR2010GB04866

PATIENT
  Age: 47 Year
  Sex: Male
  Weight: 123.8 kg

DRUGS (5)
  1. CETIRIZINE (NGX) [Suspect]
     Indication: SEASONAL ALLERGY
     Dosage: 10 MG, UNK
     Route: 048
     Dates: start: 20100207, end: 20100419
  2. CEFOXITIN [Concomitant]
     Indication: LOWER RESPIRATORY TRACT INFECTION
     Dosage: 500 MG, TID
     Route: 048
     Dates: start: 20100420
  3. IPRATROPIUM [Concomitant]
     Indication: ASTHMA
     Dosage: 4 DF, QD
     Dates: start: 20100331
  4. MONTELUKAST SODIUM [Concomitant]
     Indication: ASTHMA
     Dosage: 10 MG, QD
     Dates: start: 20100331
  5. FLUTICASONE PROPIONATE W/SALMETEROL XINAFOATE [Concomitant]
     Indication: ASTHMA
     Dosage: 500 UG, UNK
     Dates: start: 20100331

REACTIONS (3)
  - ASTHMA [None]
  - CHEST DISCOMFORT [None]
  - WHEEZING [None]
